FAERS Safety Report 15110123 (Version 1)
Quarter: 2018Q3

REPORT INFORMATION
  Report Type: Spontaneous
  Country: US (occurrence: US)
  Receive Date: 20180705
  Receipt Date: 20180705
  Transmission Date: 20181010
  Serious: No
  Sender: FDA-Public Use
  Company Number: US-TEVA-2018-US-917245

PATIENT
  Sex: Female

DRUGS (1)
  1. BACITRACIN ZINC, NEOMYCIN, POLYMYXIN B [Suspect]
     Active Substance: BACITRACIN ZINC\NEOMYCIN SULFATE\POLYMYXIN B SULFATE
     Indication: LACERATION
     Route: 065
     Dates: start: 20180624, end: 20180624

REACTIONS (4)
  - Application site pruritus [Unknown]
  - Expired product administered [Unknown]
  - Upper respiratory tract infection [Unknown]
  - Application site erythema [Unknown]

NARRATIVE: CASE EVENT DATE: 20180625
